FAERS Safety Report 17396558 (Version 2)
Quarter: 2020Q1

REPORT INFORMATION
  Report Type: Spontaneous
  Country: US (occurrence: US)
  Receive Date: 20200210
  Receipt Date: 20200313
  Transmission Date: 20200409
  Serious: No
  Sender: FDA-Public Use
  Company Number: US-PFIZER INC-2020057009

PATIENT
  Age: 54 Year
  Sex: Male
  Weight: 97.51 kg

DRUGS (1)
  1. VIAGRA [Suspect]
     Active Substance: SILDENAFIL CITRATE
     Indication: ERECTILE DYSFUNCTION
     Dosage: 100 MG, UNK (2-4 WEEK)
     Dates: start: 201609, end: 20191215

REACTIONS (1)
  - Nasopharyngitis [Unknown]
